FAERS Safety Report 17032104 (Version 3)
Quarter: 2020Q1

REPORT INFORMATION
  Report Type: Spontaneous
  Country: CZ (occurrence: CZ)
  Receive Date: 20191114
  Receipt Date: 20200214
  Transmission Date: 20200409
  Serious: Yes (Other)
  Sender: FDA-Public Use
  Company Number: CZ-MYLANLABS-2019M1109082

PATIENT
  Age: 65 Year
  Sex: Female

DRUGS (9)
  1. OXALIPLATIN. [Suspect]
     Active Substance: OXALIPLATIN
     Indication: COLON CANCER
     Dosage: UNK UNK, Q2W (4 CYCLES)
     Route: 065
     Dates: start: 201509, end: 201609
  2. OXALIPLATIN. [Suspect]
     Active Substance: OXALIPLATIN
     Indication: COLORECTAL CANCER METASTATIC
     Dosage: FOLFOX4 REGIMEN
     Route: 042
     Dates: start: 201509, end: 201609
  3. NADROPARIN [Concomitant]
     Active Substance: NADROPARIN
     Indication: HYPERTENSION
     Dosage: UNK
     Route: 058
  4. VECTIBIX [Suspect]
     Active Substance: PANITUMUMAB
     Indication: COLON CANCER
     Dosage: UNK, Q2W
     Route: 065
     Dates: start: 201509, end: 201609
  5. FOLINIC ACID [Suspect]
     Active Substance: LEUCOVORIN
     Indication: COLORECTAL CANCER METASTATIC
     Dosage: IN FRAME OF FOLFOX4 REGIMEN
     Route: 042
     Dates: start: 201509, end: 2016
  6. 5-FLUOROURACIL                     /00098801/ [Suspect]
     Active Substance: FLUOROURACIL
     Indication: COLON CANCER
     Dosage: Q2W (4 CYCLES)
     Route: 065
     Dates: start: 201509
  7. OXALIPLATIN. [Suspect]
     Active Substance: OXALIPLATIN
     Indication: ADENOCARCINOMA
  8. FOLINIC ACID [Suspect]
     Active Substance: LEUCOVORIN
     Indication: COLON CANCER
     Dosage: UNK UNK, Q2W (4 CYCLES)
     Route: 065
     Dates: start: 201509
  9. FOLINIC ACID [Suspect]
     Active Substance: LEUCOVORIN
     Indication: ADENOCARCINOMA

REACTIONS (13)
  - Hypertrichosis [Recovered/Resolved]
  - Pain [Unknown]
  - Dermatitis acneiform [Recovered/Resolved]
  - Product use in unapproved indication [Unknown]
  - Thrombocytopenia [Recovered/Resolved]
  - Stomatitis [Unknown]
  - Nausea [Recovered/Resolved]
  - Neuropathy peripheral [Not Recovered/Not Resolved]
  - Herpes simplex [Recovered/Resolved]
  - Haematotoxicity [Unknown]
  - Anaemia [Recovered/Resolved]
  - Epistaxis [Recovered/Resolved]
  - Rash [Recovered/Resolved]

NARRATIVE: CASE EVENT DATE: 2015
